FAERS Safety Report 6074274-8 (Version None)
Quarter: 2009Q1

REPORT INFORMATION
  Report Type: 
  Country: None (occurrence: None)
  Receive Date: 20090211
  Receipt Date: 20090115
  Transmission Date: 20090719
  Serious: Yes (Hospitalization)
  Sender: FDA-Public Use
  Company Number: FR-SANOFI-SYNTHELABO-A02200900296

PATIENT
  Sex: Female

DRUGS (4)
  1. VELCADE [Suspect]
     Indication: MULTIPLE MYELOMA
     Dosage: 2.1 MG
     Route: 042
     Dates: start: 20081104, end: 20081104
  2. KERLONE [Suspect]
     Indication: HYPERTENSION
     Route: 048
     Dates: start: 20060101
  3. DEXAMETHASONE TAB [Suspect]
     Indication: MULTIPLE MYELOMA
     Route: 065
     Dates: start: 20060101
  4. THALIDOMIDE [Suspect]
     Indication: MULTIPLE MYELOMA
     Route: 048
     Dates: start: 20061023, end: 20081001

REACTIONS (2)
  - CARDIAC FAILURE [None]
  - PULMONARY ARTERIAL HYPERTENSION [None]
